FAERS Safety Report 10365992 (Version 3)
Quarter: 2014Q3

REPORT INFORMATION
  Report Type: Spontaneous
  Country: US (occurrence: US)
  Receive Date: 20140806
  Receipt Date: 20140827
  Transmission Date: 20150326
  Serious: Yes (Other)
  Sender: FDA-Public Use
  Company Number: US-GLAXOSMITHKLINE-A1078264A

PATIENT
  Age: 67 Year
  Sex: Male

DRUGS (3)
  1. VOTRIENT [Suspect]
     Active Substance: PAZOPANIB HYDROCHLORIDE
     Indication: RENAL CELL CARCINOMA
     Dosage: 800MG PER DAY
     Route: 048
     Dates: start: 20140612
  2. OTHER MEDICATIONS [Concomitant]
     Active Substance: UNSPECIFIED INGREDIENT
  3. INSULIN [Concomitant]
     Active Substance: INSULIN NOS

REACTIONS (18)
  - Protein urine present [Unknown]
  - Nausea [Recovering/Resolving]
  - Memory impairment [Unknown]
  - Dizziness [Recovering/Resolving]
  - Joint swelling [Unknown]
  - Aphonia [Unknown]
  - Deafness unilateral [Unknown]
  - Back pain [Unknown]
  - Peripheral swelling [Unknown]
  - Headache [Unknown]
  - Increased tendency to bruise [Unknown]
  - Dysgeusia [Recovering/Resolving]
  - Cough [Recovering/Resolving]
  - Vision blurred [Recovered/Resolved]
  - Rhinorrhoea [Recovered/Resolved]
  - Pain [Unknown]
  - Pulmonary pain [Unknown]
  - Abdominal pain upper [Unknown]

NARRATIVE: CASE EVENT DATE: 20140618
